FAERS Safety Report 7261940-1 (Version None)
Quarter: 2011Q1

REPORT INFORMATION
  Report Type: 
  Country: None (occurrence: None)
  Receive Date: 20110130
  Receipt Date: 20101201
  Transmission Date: 20110831
  Serious: No
  Sender: FDA-Public Use
  Company Number: US-ABBOTT-10P-163-0688946-00

PATIENT
  Age: 77 Year
  Sex: Female

DRUGS (21)
  1. NEXIUM [Concomitant]
     Indication: GASTROOESOPHAGEAL REFLUX DISEASE
  2. SINGULAIR [Concomitant]
     Indication: SEASONAL ALLERGY
  3. AZELASTINE HCL [Concomitant]
     Indication: SEASONAL ALLERGY
     Dosage: 1 GTT IN EACH EYE AS NEEDED
     Route: 047
  4. ASA [Concomitant]
     Indication: COAGULOPATHY
     Dosage: AT BEDTIME
  5. LORRISET [Concomitant]
     Indication: PRODUCT USED FOR UNKNOWN INDICATION
     Dosage: 10/650MG TWO TABLETS EVERY 8 HOURS
  6. ATENOLOL AND CHLORTHALIDONE [Concomitant]
     Indication: HYPERTENSION
     Dosage: 50/100MG DAILY
  7. VIT D [Concomitant]
     Indication: PRODUCT USED FOR UNKNOWN INDICATION
  8. XANAX [Concomitant]
     Indication: PRODUCT USED FOR UNKNOWN INDICATION
     Dosage: ONE EVERY 8 HOURS AS NEEDED
  9. ASPIRIN [Concomitant]
     Indication: PRODUCT USED FOR UNKNOWN INDICATION
  10. VIT C [Concomitant]
     Indication: PRODUCT USED FOR UNKNOWN INDICATION
  11. CALCIUM CITRATE [Concomitant]
     Indication: PRODUCT USED FOR UNKNOWN INDICATION
  12. BALSALZIDE [Concomitant]
     Indication: CROHN'S DISEASE
  13. CLONAZEPAM [Concomitant]
     Indication: RESTLESS LEGS SYNDROME
     Dosage: AT BEDTIME
  14. FE [Concomitant]
     Indication: ANAEMIA
  15. ASTELIN [Concomitant]
     Indication: SEASONAL ALLERGY
     Dosage: 1 PUFF EACH NOSTRIL DAILY
     Route: 045
  16. POTASSIUM CHLORIDE [Concomitant]
     Indication: CROHN'S DISEASE
     Dosage: MICRO 29 MDQ 20 MEG 1 TABLET DAILY
  17. HYOMAX-SL [Concomitant]
     Indication: DIARRHOEA
     Dosage: 1-2 DAILY
     Route: 060
  18. LOC-NYDNN LOTION [Concomitant]
     Indication: PRODUCT USED FOR UNKNOWN INDICATION
     Dosage: APPLY TO AFFECTED AREA 2 TIMES DAILY
  19. HUMIRA [Suspect]
     Indication: CROHN'S DISEASE
     Dates: start: 20100801
  20. ZOLOFT [Concomitant]
     Indication: DEPRESSION
  21. MULTI-VITAMIN [Concomitant]
     Indication: PRODUCT USED FOR UNKNOWN INDICATION

REACTIONS (1)
  - INJECTION SITE HAEMORRHAGE [None]
